FAERS Safety Report 6695731-7 (Version None)
Quarter: 2010Q2

REPORT INFORMATION
  Report Type: 
  Country: None (occurrence: None)
  Receive Date: 20100426
  Receipt Date: 20100419
  Transmission Date: 20101027
  Serious: Yes (Other)
  Sender: FDA-Public Use
  Company Number: US-BAYER-200936728NA

PATIENT
  Age: 22 Year
  Sex: Female
  Weight: 149 kg

DRUGS (1)
  1. MIRENA [Suspect]
     Indication: CONTRACEPTION
     Dosage: CONTINUOUS
     Route: 015
     Dates: start: 20090804

REACTIONS (2)
  - ENDOMETRIAL ADENOMA [None]
  - MEDICAL DEVICE COMPLICATION [None]
